FAERS Safety Report 4278022-3 (Version None)
Quarter: 2004Q1

REPORT INFORMATION
  Report Type: 
  Country: None (occurrence: None)
  Receive Date: 20040121
  Receipt Date: 20040113
  Transmission Date: 20041129
  Serious: Yes (Hospitalization)
  Sender: FDA-Public Use
  Company Number: HQWYE297713JAN04

PATIENT
  Age: 26 Year
  Sex: Female

DRUGS (10)
  1. PROGRAF [Suspect]
     Indication: PROPHYLAXIS AGAINST TRANSPLANT REJECTION
     Dosage: 2.5 MG 2X PER 1 DAY
     Route: 048
     Dates: start: 20030402
  2. WARFARIN SODIUM [Suspect]
     Dosage: ^ZIE SCHEMA^
     Dates: end: 20040102
  3. WARFARIN SODIUM [Suspect]
     Dosage: ^ZIE SCHEMA^
     Dates: start: 20040101
  4. EMCONCOR (BISOPROLOL FUMARATE) [Concomitant]
  5. RECORMON (ERYTHROPOIETIN HUMAN) [Concomitant]
  6. MEDROL [Concomitant]
  7. TAGAMET [Concomitant]
  8. CELLCEPT [Concomitant]
  9. SODIUM BICARBONATE IN PLASTIC CONTAINER [Concomitant]
  10. NILSTAT (NYSTATIN) [Concomitant]

REACTIONS (7)
  - BRONCHIECTASIS [None]
  - HAEMATOCRIT DECREASED [None]
  - HAEMOGLOBIN DECREASED [None]
  - HAEMOPTYSIS [None]
  - LUNG INFILTRATION [None]
  - THROMBOSIS [None]
  - VENOUS STASIS [None]
